FAERS Safety Report 7816572-0 (Version None)
Quarter: 2011Q4

REPORT INFORMATION
  Report Type: 
  Country: None (occurrence: None)
  Receive Date: 20111017
  Receipt Date: 20111011
  Transmission Date: 20120403
  Serious: Yes (Other)
  Sender: FDA-Public Use
  Company Number: GB-PFIZER INC-2011243208

PATIENT
  Age: 77 Year
  Sex: Male

DRUGS (1)
  1. LATANOPROST [Suspect]

REACTIONS (1)
  - HALLUCINATION [None]
